FAERS Safety Report 23904090 (Version 1)
Quarter: 2024Q2

REPORT INFORMATION
  Report Type: Spontaneous
  Country: CA (occurrence: CA)
  Receive Date: 20240527
  Receipt Date: 20240527
  Transmission Date: 20240716
  Serious: Yes (Hospitalization)
  Sender: FDA-Public Use
  Company Number: None

PATIENT
  Age: 69 Year
  Sex: Male
  Weight: 84 kg

DRUGS (12)
  1. FLUOROURACIL [Suspect]
     Active Substance: FLUOROURACIL
     Indication: Colorectal cancer
  2. IRINOTECAN [Suspect]
     Active Substance: IRINOTECAN
     Indication: Colorectal cancer
     Route: 042
  3. LEUCOVORIN [Suspect]
     Active Substance: LEUCOVORIN\LEUCOVORIN CALCIUM
     Indication: Colorectal cancer
  4. ATROPINE [Concomitant]
     Active Substance: ATROPINE\ATROPINE SULFATE
  5. DEXAMETHASONE [Concomitant]
     Active Substance: DEXAMETHASONE
     Route: 065
  6. DIMENHYDRINATE [Concomitant]
     Active Substance: DIMENHYDRINATE
  7. DOMPERIDONE [Concomitant]
     Active Substance: DOMPERIDONE
  8. FERROUS SULFATE [Concomitant]
     Active Substance: FERROUS SULFATE
  9. LOPERAMIDE [Concomitant]
     Active Substance: LOPERAMIDE
  10. ONDANSETRON [Concomitant]
     Active Substance: ONDANSETRON
  11. PANTOPRAZOLE [Concomitant]
     Active Substance: PANTOPRAZOLE
  12. PREGABALIN [Concomitant]
     Active Substance: PREGABALIN

REACTIONS (1)
  - Febrile neutropenia [Recovered/Resolved]
